FAERS Safety Report 4744447-2 (Version None)
Quarter: 2005Q3

REPORT INFORMATION
  Report Type: 
  Country: None (occurrence: None)
  Receive Date: 20050811
  Receipt Date: 20050811
  Transmission Date: 20060218
  Serious: Yes (Hospitalization)
  Sender: FDA-Public Use
  Company Number: None

PATIENT
  Age: 59 Year
  Sex: Female
  Weight: 45.3597 kg

DRUGS (1)
  1. AVASTIN [Suspect]
     Indication: REVERSIBLE POSTERIOR LEUKOENCEPHALOPATHY SYNDROME
     Dosage: 1 Q 2 WKS X 7 LAST DOSE JULY 21 05
     Dates: end: 20050721

REACTIONS (3)
  - BLINDNESS CORTICAL [None]
  - LETHARGY [None]
  - VISUAL ACUITY REDUCED [None]
